FAERS Safety Report 8099979-9 (Version None)
Quarter: 2012Q1

REPORT INFORMATION
  Report Type: 
  Country: None (occurrence: None)
  Receive Date: 20120129
  Receipt Date: 20111129
  Transmission Date: 20120608
  Serious: Yes (Other)
  Sender: FDA-Public Use
  Company Number: US-ABBOTT-11P-163-0878805-00

PATIENT
  Sex: Female

DRUGS (11)
  1. PROTONIX [Concomitant]
     Indication: DYSPEPSIA
  2. LEVOTHYROXINE SODIUM [Concomitant]
     Indication: HYPOTHYROIDISM
  3. GABAPENTIN [Concomitant]
     Indication: BACK PAIN
  4. ASPIRIN [Concomitant]
     Indication: CARDIAC DISORDER
  5. ESTROGEN METHLYTEST [Concomitant]
     Indication: HORMONE REPLACEMENT THERAPY
  6. CELEBREX [Concomitant]
     Indication: ANKYLOSING SPONDYLITIS
  7. VITAMIN D2 [Concomitant]
     Indication: VITAMIN SUPPLEMENTATION
  8. TRICOR [Concomitant]
     Indication: BLOOD CHOLESTEROL INCREASED
  9. ZYRTEC [Concomitant]
     Indication: HYPERSENSITIVITY
  10. HUMIRA [Suspect]
     Indication: ANKYLOSING SPONDYLITIS
     Dates: start: 20110919
  11. TRAZODONE HCL [Concomitant]
     Indication: SLEEP DISORDER THERAPY

REACTIONS (3)
  - DYSGEUSIA [None]
  - CATARACT [None]
  - INJECTION SITE PAIN [None]
